FAERS Safety Report 9447984 (Version 1)
Quarter: 2013Q3

REPORT INFORMATION
  Report Type: Spontaneous
  Country: FR (occurrence: FR)
  Receive Date: 20130808
  Receipt Date: 20130808
  Transmission Date: 20140515
  Serious: Yes (Hospitalization)
  Sender: FDA-Public Use
  Company Number: PHHY2013FR085031

PATIENT
  Age: 45 Year
  Sex: Male

DRUGS (3)
  1. STALEVO [Suspect]
     Indication: PARKINSON^S DISEASE
     Dosage: 4 DF (200 MG ENTA, 100 MG LEVO AND 25 MG CARB), QD
     Route: 048
     Dates: start: 201212, end: 20130512
  2. SIFROL [Concomitant]
     Indication: PARKINSON^S DISEASE
     Dosage: 2.1 MG, QD
     Route: 048
     Dates: start: 201212
  3. AZILECT [Concomitant]
     Indication: PARKINSON^S DISEASE
     Dosage: 1 DF, QD
     Route: 048
     Dates: start: 201212

REACTIONS (2)
  - Haemorrhagic erosive gastritis [Recovered/Resolved]
  - Shock haemorrhagic [Recovered/Resolved]
